FAERS Safety Report 4678212-1 (Version None)
Quarter: 2005Q2

REPORT INFORMATION
  Report Type: 
  Country: None (occurrence: None)
  Receive Date: 20050527
  Receipt Date: 20050517
  Transmission Date: 20051028
  Serious: Yes (Death)
  Sender: FDA-Public Use
  Company Number: 2005072442

PATIENT
  Age: 71 Year
  Sex: Female

DRUGS (3)
  1. CABERGOLINE [Suspect]
     Indication: PARKINSON'S DISEASE
     Dosage: 0.5 MG (DAILY), ORAL
     Route: 048
     Dates: start: 20010825
  2. EC DOPARL (BENSERAZIDE HYDROCHLORIDE, LEVODOPA) [Concomitant]
  3. ALFACALCIDOL (ALFACALCIDOL) [Concomitant]

REACTIONS (1)
  - MYOCARDIAL INFARCTION [None]
